FAERS Safety Report 5413245-9 (Version None)
Quarter: 2007Q3

REPORT INFORMATION
  Report Type: 
  Country: None (occurrence: None)
  Receive Date: 20070814
  Receipt Date: 20070803
  Transmission Date: 20080115
  Serious: Yes (Hospitalization)
  Sender: FDA-Public Use
  Company Number: HQWYE385803AUG07

PATIENT
  Sex: Female

DRUGS (5)
  1. INIPOMP [Suspect]
     Route: 048
     Dates: end: 20070602
  2. SINTROM [Concomitant]
     Dosage: DOSE FORM
     Route: 048
  3. CORTANCYL [Concomitant]
     Dosage: DOSE FORM
     Route: 048
  4. LASIX [Suspect]
     Indication: HYPERTENSION
     Route: 048
     Dates: end: 20070531
  5. TAREG [Concomitant]
     Dosage: UNKNOWN

REACTIONS (3)
  - CONVULSION [None]
  - HYPONATRAEMIA [None]
  - VOMITING [None]
